FAERS Safety Report 8814923 (Version 1)
Quarter: 2012Q4

REPORT INFORMATION
  Report Type: 
  Country: DE (occurrence: DE)
  Receive Date: 20120928
  Receipt Date: 20120928
  Transmission Date: 20130627
  Serious: Yes (Congenital Anomaly, Other)
  Sender: FDA-Public Use
  Company Number: DE-PFIZER INC-2012238510

PATIENT
  Sex: Male
  Weight: 2.25 kg

DRUGS (5)
  1. VENLAFAXINE HYDROCHLORIDE [Suspect]
     Indication: DEPRESSION
     Dosage: 225 mg, 1x/day
     Route: 064
     Dates: start: 20101022
  2. VENLAFAXINE HYDROCHLORIDE [Suspect]
     Dosage: 150 mg, 1x/day
     Route: 064
  3. VENLAFAXINE HYDROCHLORIDE [Suspect]
     Dosage: 225 mg, 1x/day
     Route: 064
     Dates: end: 20110702
  4. FOLIC ACID [Concomitant]
     Indication: PROPHYLAXIS OF NEURAL TUBE DEFECT
     Dosage: 0.4 mg, 1x/day
     Route: 064
     Dates: start: 20101201, end: 20110702
  5. TAVOR [Concomitant]
     Indication: DEPRESSION
     Dosage: 0.5 mg, 1x/day
     Route: 064
     Dates: start: 20110310, end: 20110310

REACTIONS (4)
  - Maternal exposure timing unspecified [Unknown]
  - Haemangioma [Recovering/Resolving]
  - Low birth weight baby [Unknown]
  - Breech presentation [Recovered/Resolved]
